FAERS Safety Report 21473500 (Version 9)
Quarter: 2023Q1

REPORT INFORMATION
  Report Type: Report from Study
  Country: US (occurrence: US)
  Receive Date: 20221018
  Receipt Date: 20230309
  Transmission Date: 20230418
  Serious: No
  Sender: FDA-Public Use
  Company Number: US-NOVARTISTESTPH-NVSC2022US234177

PATIENT
  Sex: Female

DRUGS (1)
  1. COSENTYX [Suspect]
     Active Substance: SECUKINUMAB
     Indication: Psoriatic arthropathy
     Dosage: 150 MG, QMO (EVERY 4 WEEKS)
     Route: 058

REACTIONS (5)
  - Injection site bruising [Recovered/Resolved]
  - Pain in extremity [Unknown]
  - Back pain [Unknown]
  - Wrong technique in device usage process [Unknown]
  - Product storage error [Unknown]
